FAERS Safety Report 14456425 (Version 2)
Quarter: 2018Q1

REPORT INFORMATION
  Report Type: Spontaneous
  Country: CA (occurrence: CA)
  Receive Date: 20180130
  Receipt Date: 20180131
  Transmission Date: 20180509
  Serious: Yes (Other)
  Sender: FDA-Public Use
  Company Number: CA-ORION CORPORATION ORION PHARMA-TREX2018-0239

PATIENT
  Age: 66 Year
  Sex: Male

DRUGS (11)
  1. CYCLOBENZAPRINE. [Suspect]
     Active Substance: CYCLOBENZAPRINE
     Route: 065
  2. ATORVASTATIN [Suspect]
     Active Substance: ATORVASTATIN
     Route: 065
  3. JANUMET [Suspect]
     Active Substance: METFORMIN HYDROCHLORIDE\SITAGLIPTIN PHOSPHATE
     Route: 065
  4. NAPROXEN. [Suspect]
     Active Substance: NAPROXEN
     Route: 065
  5. PANTOPRAZOLE [Suspect]
     Active Substance: PANTOPRAZOLE
     Route: 065
  6. CELEBREX [Suspect]
     Active Substance: CELECOXIB
     Route: 065
  7. METHOTREXATE (TRADE NAME UNKNOWN) [Suspect]
     Active Substance: METHOTREXATE
     Route: 048
  8. TWYNSTA [Suspect]
     Active Substance: AMLODIPINE BESYLATE\TELMISARTAN
     Route: 065
  9. HUMIRA [Suspect]
     Active Substance: ADALIMUMAB
     Route: 065
  10. LEUCOVORIN. [Suspect]
     Active Substance: LEUCOVORIN
     Route: 048
  11. ENBREL [Suspect]
     Active Substance: ETANERCEPT
     Route: 065

REACTIONS (5)
  - Drug dose omission [Unknown]
  - Cough [Recovering/Resolving]
  - Inappropriate schedule of drug administration [Unknown]
  - Throat irritation [Recovering/Resolving]
  - Blood pressure increased [Unknown]
